FAERS Safety Report 8020184-6 (Version None)
Quarter: 2012Q1

REPORT INFORMATION
  Report Type: 
  Country: None (occurrence: None)
  Receive Date: 20120103
  Receipt Date: 20111220
  Transmission Date: 20120608
  Serious: Yes (Death, Other)
  Sender: FDA-Public Use
  Company Number: DE-CELGENEUS-062-50794-11060155

PATIENT
  Age: 76 Year
  Sex: Male

DRUGS (3)
  1. IDARUBICIN HCL [Suspect]
     Dosage: 24 MILLIGRAM
     Route: 065
     Dates: start: 20110517, end: 20110519
  2. ETOPOSIDE [Suspect]
     Dosage: 203 MILLIGRAM
     Route: 065
     Dates: start: 20110517, end: 20110519
  3. VIDAZA [Suspect]
     Dosage: 200 MILLIGRAM
     Route: 050
     Dates: start: 20110517, end: 20110521

REACTIONS (1)
  - SEPSIS [None]
